FAERS Safety Report 4474299-X (Version None)
Quarter: 2004Q4

REPORT INFORMATION
  Report Type: 
  Country: None (occurrence: None)
  Receive Date: 20041014
  Receipt Date: 20040921
  Transmission Date: 20050328
  Serious: Yes (Other)
  Sender: FDA-Public Use
  Company Number: US-ROCHE-381259

PATIENT
  Age: 37 Year
  Sex: Female
  Weight: 95.3 kg

DRUGS (5)
  1. PEGASYS [Suspect]
     Indication: HEPATITIS C VIRUS
     Route: 058
     Dates: start: 20040612
  2. COPEGUS [Suspect]
     Indication: HEPATITIS C VIRUS
     Route: 048
     Dates: start: 20040612
  3. SINGULAIR [Concomitant]
     Indication: ASTHMA
     Route: 048
  4. LEXAPRO [Concomitant]
     Indication: DEPRESSION
     Route: 048
  5. METFORMIN HCL [Concomitant]
     Route: 048

REACTIONS (6)
  - CONVULSION [None]
  - DYSURIA [None]
  - EPILEPSY [None]
  - FATIGUE [None]
  - MIGRAINE [None]
  - NASOPHARYNGITIS [None]
